FAERS Safety Report 8580458-7 (Version None)
Quarter: 2012Q3

REPORT INFORMATION
  Report Type: 
  Country: None (occurrence: None)
  Receive Date: 20120808
  Receipt Date: 20061108
  Transmission Date: 20120928
  Serious: Yes (Hospitalization)
  Sender: FDA-Public Use
  Company Number: US-ROCHE-1098888

PATIENT
  Sex: Female

DRUGS (6)
  1. XOLAIR [Suspect]
     Indication: RHINITIS SEASONAL
  2. ALBUTEROL [Concomitant]
  3. SINGULAIR [Concomitant]
  4. ALLEGRA [Concomitant]
  5. FLOVENT [Concomitant]
  6. XOLAIR [Suspect]
     Indication: ASTHMA
     Dates: end: 20060501

REACTIONS (1)
  - ASTHMA [None]
